FAERS Safety Report 5569770-3 (Version None)
Quarter: 2007Q4

REPORT INFORMATION
  Report Type: 
  Country: None (occurrence: None)
  Receive Date: 20071220
  Receipt Date: 20070202
  Transmission Date: 20080405
  Serious: No
  Sender: FDA-Public Use
  Company Number: US-ABBOTT-07P-163-0358523-00

PATIENT
  Sex: Female
  Weight: 73.548 kg

DRUGS (3)
  1. OMNICEF [Suspect]
     Indication: SINUSITIS
     Route: 048
     Dates: start: 20070129, end: 20070202
  2. ESOMEPRAZOLE [Concomitant]
     Indication: GASTROOESOPHAGEAL REFLUX DISEASE
     Route: 048
     Dates: start: 19970101
  3. ROBITUSSIN [Concomitant]
     Indication: SINUSITIS
     Route: 048
     Dates: start: 20070119

REACTIONS (5)
  - DIZZINESS [None]
  - DRY MOUTH [None]
  - NAUSEA [None]
  - PARAESTHESIA [None]
  - VOMITING [None]
